FAERS Safety Report 19605868 (Version 1)
Quarter: 2021Q3

REPORT INFORMATION
  Report Type: Spontaneous
  Country: AU (occurrence: AU)
  Receive Date: 20210723
  Receipt Date: 20210723
  Transmission Date: 20211014
  Serious: Yes (Hospitalization, Other)
  Sender: FDA-Public Use
  Company Number: AU-009507513-2107AUS006262

PATIENT
  Age: 60 Year
  Sex: Female

DRUGS (6)
  1. KEYTRUDA [Suspect]
     Active Substance: PEMBROLIZUMAB
  2. HEXAMINE HIPPURATE [Concomitant]
  3. ASCORBIC ACID. [Concomitant]
     Active Substance: ASCORBIC ACID
  4. VAGIFEM [Concomitant]
     Active Substance: ESTRADIOL
  5. CEFALEXIN [Concomitant]
     Active Substance: CEPHALEXIN
  6. TELMISARTAN. [Concomitant]
     Active Substance: TELMISARTAN

REACTIONS (5)
  - Erythema [Unknown]
  - Lip blister [Unknown]
  - Cough [Unknown]
  - Rash pruritic [Unknown]
  - Pyrexia [Unknown]

NARRATIVE: CASE EVENT DATE: 20200204
